FAERS Safety Report 4928311-1 (Version None)
Quarter: 2006Q1

REPORT INFORMATION
  Report Type: 
  Country: None (occurrence: None)
  Receive Date: 20060223
  Receipt Date: 20060201
  Transmission Date: 20060701
  Serious: Yes (Death, Hospitalization)
  Sender: FDA-Public Use
  Company Number: CA200512002284

PATIENT
  Age: 47 Year
  Sex: Female

DRUGS (10)
  1. GEMCITABINE [Suspect]
     Indication: METASTATIC CARCINOMA OF THE BLADDER
     Dosage: SEE IMAGE
     Route: 042
     Dates: start: 20050908
  2. GEMCITABINE [Suspect]
     Indication: METASTATIC CARCINOMA OF THE BLADDER
     Dosage: SEE IMAGE
     Route: 042
     Dates: start: 20051006
  3. CISPLATIN [Concomitant]
  4. DEXAMETHASONE [Concomitant]
  5. ONDANSETRON [Concomitant]
  6. OMEPRAZOLE [Concomitant]
  7. PROCHLORPERAZINE MALEATE [Concomitant]
  8. LORAZEPAM [Concomitant]
  9. MANNITOL [Concomitant]
  10. FUROSEMIDE [Concomitant]

REACTIONS (8)
  - ASTHENIA [None]
  - CARDIAC ARREST [None]
  - GASTRITIS [None]
  - MALAISE [None]
  - MYOCARDIAL INFARCTION [None]
  - NEUTROPENIA [None]
  - PLATELET COUNT DECREASED [None]
  - PYREXIA [None]
